FAERS Safety Report 8385695-2 (Version None)
Quarter: 2012Q2

REPORT INFORMATION
  Report Type: 
  Country: None (occurrence: None)
  Receive Date: 20120525
  Receipt Date: 20120521
  Transmission Date: 20120825
  Serious: No
  Sender: FDA-Public Use
  Company Number: US-PFIZER INC-2012123159

PATIENT
  Sex: Female
  Weight: 44.444 kg

DRUGS (9)
  1. PRISTIQ [Suspect]
     Indication: DEPRESSION
     Dosage: 100 MG, 1X/DAY
     Route: 048
     Dates: start: 20090201, end: 20120421
  2. NORCO [Concomitant]
     Dosage: 325/7.5 MG, 3X/DAY
  3. DICYCLOMINE [Concomitant]
     Dosage: 10 MG, 3X/DAY
  4. PRISTIQ [Suspect]
     Dosage: 25 MG, EVERY OTHER DAY
     Route: 048
     Dates: start: 20120512
  5. XANAX [Concomitant]
     Dosage: 0.5 MG, 3X/DAY
  6. ZANTAC [Concomitant]
     Dosage: 150 MG, 2X/DAY
  7. EFFEXOR [Suspect]
     Indication: DEPRESSION
     Dosage: 50 MG, 1X/DAY
     Route: 048
  8. PRISTIQ [Suspect]
     Dosage: 50 MG, EVERY OTHER DAY
     Route: 048
     Dates: start: 20120428, end: 20120512
  9. PRISTIQ [Suspect]
     Dosage: 50 MG, 1X/DAY
     Route: 048
     Dates: start: 20120421, end: 20120428

REACTIONS (10)
  - EATING DISORDER [None]
  - NAUSEA [None]
  - HEARING IMPAIRED [None]
  - NERVOUS SYSTEM DISORDER [None]
  - CRYING [None]
  - MALAISE [None]
  - ABDOMINAL PAIN UPPER [None]
  - DIARRHOEA [None]
  - HEADACHE [None]
  - VISUAL IMPAIRMENT [None]
